FAERS Safety Report 5621374-X (Version None)
Quarter: 2008Q1

REPORT INFORMATION
  Report Type: 
  Country: None (occurrence: None)
  Receive Date: 20080128
  Receipt Date: 20080118
  Transmission Date: 20080703
  Serious: Yes (Hospitalization, Other)
  Sender: FDA-Public Use
  Company Number: 2008000408

PATIENT
  Sex: Male
  Weight: 109.7705 kg

DRUGS (3)
  1. ZYRTEC [Suspect]
     Indication: HISTAMINE LEVEL
     Dosage: 10 MG (10 MG, 1 IN 1 D), ORAL
     Route: 048
  2. CHLORPHENIRAMINE/DEXTROMETHORPHAN (CHLORPHENIRAMINE, DEXTROMETHORPHAN) [Suspect]
     Indication: NASOPHARYNGITIS
     Dates: start: 20071201, end: 20071225
  3. METFORMIN HCL [Concomitant]

REACTIONS (10)
  - BLOOD PRESSURE DECREASED [None]
  - CONDITION AGGRAVATED [None]
  - CONVULSION [None]
  - DRUG INTERACTION [None]
  - FATIGUE [None]
  - FEELING ABNORMAL [None]
  - LOSS OF CONSCIOUSNESS [None]
  - NASOPHARYNGITIS [None]
  - SYNCOPE VASOVAGAL [None]
  - VIRAL INFECTION [None]
